FAERS Safety Report 4286444-X (Version None)
Quarter: 2004Q1

REPORT INFORMATION
  Report Type: 
  Country: None (occurrence: None)
  Receive Date: 20040204
  Receipt Date: 20040127
  Transmission Date: 20041129
  Serious: Yes (Hospitalization)
  Sender: FDA-Public Use
  Company Number: 2004194150FR

PATIENT
  Age: 4 Year
  Sex: Female

DRUGS (24)
  1. ALDACTONE [Suspect]
     Dosage: 30 MG, ORAL
     Route: 048
     Dates: start: 20031113, end: 20031209
  2. LASIX [Suspect]
     Dosage: 100 MG 6 TIMES DAILY, IV
     Route: 042
     Dates: start: 20031028, end: 20031030
  3. GENTAMICIN [Suspect]
     Dosage: IV
     Route: 042
     Dates: start: 20031029, end: 20031030
  4. MORPHINE HYDROCHLORIDE (MORPHINE HYDROCHLORIDE) [Suspect]
     Dosage: SEE IMAGE
     Route: 042
     Dates: start: 20031028, end: 20031031
  5. MORPHINE HYDROCHLORIDE (MORPHINE HYDROCHLORIDE) [Suspect]
     Dosage: SEE IMAGE
     Route: 042
     Dates: start: 20031103, end: 20031103
  6. VANCOCIN HCL [Suspect]
     Dosage: IV
     Route: 042
     Dates: start: 20031029, end: 20031105
  7. PARACETAMOL (PARACETAMOL) [Suspect]
     Dosage: 100 MG SIX TIMES DAILY, IV
     Route: 042
     Dates: start: 20031028, end: 20031030
  8. NUBAIN [Suspect]
     Dates: start: 20031104, end: 20031104
  9. DIGOXIN [Suspect]
     Dates: start: 20031103, end: 20031103
  10. ACETAMINOPHEN [Suspect]
     Dosage: ORAL
     Route: 048
     Dates: start: 20031106, end: 20031116
  11. CODEINE (CODEINE) [Concomitant]
     Dosage: IV
     Route: 042
     Dates: start: 20031105, end: 20031115
  12. KAYEXALATE [Suspect]
     Dates: start: 20031029, end: 20031029
  13. ROCEPHIN [Suspect]
     Dates: start: 20031030, end: 20031030
  14. CLAFORAN [Suspect]
     Dates: start: 20031031, end: 20031105
  15. NORCURON [Suspect]
     Dates: start: 20031030, end: 20031030
  16. OMEPRAZOLE [Suspect]
     Dates: start: 20031028, end: 20031117
  17. COROTROPE [Suspect]
     Dates: start: 20031029, end: 20031101
  18. EPINEPHRINE [Suspect]
     Dates: start: 20031028, end: 20031104
  19. FENTANYL [Suspect]
     Dates: start: 20031028, end: 20031030
  20. NARCOZEP (FLUNITRAZEPAM) [Suspect]
     Dates: start: 20031028, end: 20031030
  21. ASPEGIC 1000 [Suspect]
     Dates: start: 20031108, end: 20031118
  22. UN-ALFA (ALFACALCIDO0L) [Suspect]
     Dates: start: 20031107, end: 20031124
  23. CALCIDIA (CALCIUM CARBONATE) [Suspect]
     Dates: start: 20031115, end: 20031124
  24. VITAMIN K (PHENYTOMENADIONE) [Concomitant]

REACTIONS (4)
  - CARDIAC DISORDER [None]
  - ECCHYMOSIS [None]
  - EPISTAXIS [None]
  - PANCYTOPENIA [None]
